FAERS Safety Report 12419734 (Version 1)
Quarter: 2016Q2

REPORT INFORMATION
  Report Type: Spontaneous
  Country: FR (occurrence: FR)
  Receive Date: 20160531
  Receipt Date: 20160531
  Transmission Date: 20160815
  Serious: Yes (Life-Threatening)
  Sender: FDA-Public Use
  Company Number: FR-GLAXOSMITHKLINE-FR2016GSK074697

PATIENT
  Age: 19 Year
  Sex: Female

DRUGS (7)
  1. KETAMINE [Suspect]
     Active Substance: KETAMINE
     Indication: GENERAL ANAESTHESIA
     Dosage: 20 MG, UNK
     Route: 042
     Dates: start: 20160510, end: 20160510
  2. SUFENTANIL [Suspect]
     Active Substance: SUFENTANIL
     Indication: GENERAL ANAESTHESIA
     Dosage: 20 UG, UNK
     Route: 042
     Dates: start: 20160510, end: 20160510
  3. PROPOFOL. [Suspect]
     Active Substance: PROPOFOL
     Indication: GENERAL ANAESTHESIA
     Dosage: UNK
     Route: 042
     Dates: start: 20160510, end: 20160510
  4. CEFUROXIME. [Suspect]
     Active Substance: CEFUROXIME
     Indication: GENERAL ANAESTHESIA
     Dosage: 1.5 G, UNK
     Route: 042
     Dates: start: 20160510, end: 20160510
  5. DEXAMETHASONE. [Concomitant]
     Active Substance: DEXAMETHASONE
     Indication: PRODUCT USED FOR UNKNOWN INDICATION
     Dosage: UNK
     Dates: start: 20160510, end: 20160510
  6. TRACRIUM [Suspect]
     Active Substance: ATRACURIUM BESYLATE
     Indication: GENERAL ANAESTHESIA
     Dosage: 30 MG, UNK
     Route: 042
     Dates: start: 20160510, end: 20160510
  7. MIDAZOLAM [Suspect]
     Active Substance: MIDAZOLAM\MIDAZOLAM HYDROCHLORIDE
     Indication: GENERAL ANAESTHESIA
     Dosage: UNK
     Route: 042
     Dates: start: 20160510, end: 20160510

REACTIONS (3)
  - Bronchospasm [Recovered/Resolved]
  - Rash [Recovered/Resolved]
  - Cardiac output decreased [Recovered/Resolved]

NARRATIVE: CASE EVENT DATE: 20160510
